FAERS Safety Report 21849285 (Version 1)
Quarter: 2023Q1

REPORT INFORMATION
  Report Type: Spontaneous
  Country: US (occurrence: None)
  Receive Date: 20230111
  Receipt Date: 20230111
  Transmission Date: 20230418
  Serious: No
  Sender: FDA-Public Use
  Company Number: None

PATIENT
  Sex: Female

DRUGS (1)
  1. OLUMIANT [Suspect]
     Active Substance: BARICITINIB
     Indication: Juvenile idiopathic arthritis
     Dosage: FREQUENCY : DAILY;?
     Route: 048
     Dates: start: 20221219

REACTIONS (3)
  - Joint swelling [None]
  - Arthralgia [None]
  - Therapy non-responder [None]
